FAERS Safety Report 5500597-4 (Version None)
Quarter: 2007Q4

REPORT INFORMATION
  Report Type: 
  Country: None (occurrence: None)
  Receive Date: 20071029
  Receipt Date: 20071022
  Transmission Date: 20080405
  Serious: Yes (Hospitalization)
  Sender: FDA-Public Use
  Company Number: SE-AVENTIS-200719692GDDC

PATIENT
  Age: 67 Year
  Sex: Female

DRUGS (9)
  1. FLAGYL [Suspect]
     Indication: CHOLECYSTITIS
     Dosage: DOSE: UNK
     Dates: start: 20070701, end: 20070701
  2. CIPROXIN                           /00697201/ [Suspect]
     Indication: CHOLECYSTITIS
     Dosage: DOSE: UNK
     Dates: start: 20070701, end: 20070701
  3. HERACILLIN                         /00239103/ [Suspect]
     Indication: ERYSIPELAS
     Dosage: DOSE: UNK
     Dates: start: 20070701, end: 20070701
  4. ANALGESICS [Concomitant]
     Dosage: DOSE: UNK
  5. FLUKONAZOL [Concomitant]
     Dosage: DOSE: UNK
  6. KALCIPOS-D [Concomitant]
     Dosage: DOSE: UNK
  7. OMEPRAZOLE [Concomitant]
     Dosage: DOSE: UNK
  8. BEHEPAN [Concomitant]
     Dosage: DOSE: UNK
  9. VALTREX [Concomitant]
     Dosage: DOSE: UNK

REACTIONS (1)
  - TRANSAMINASES INCREASED [None]
